FAERS Safety Report 20216885 (Version 1)
Quarter: 2021Q4

REPORT INFORMATION
  Report Type: Spontaneous
  Country: US (occurrence: None)
  Receive Date: 20211222
  Receipt Date: 20211222
  Transmission Date: 20220304
  Serious: Yes (Hospitalization)
  Sender: FDA-Public Use
  Company Number: None

PATIENT
  Age: 70 Year
  Sex: Male
  Weight: 73.3 kg

DRUGS (1)
  1. DULOXETINE HYDROCHLORIDE [Suspect]
     Active Substance: DULOXETINE HYDROCHLORIDE
     Dates: end: 20211129

REACTIONS (16)
  - Gram stain positive [None]
  - Body temperature increased [None]
  - Aortic valve incompetence [None]
  - Mitral valve thickening [None]
  - Endocarditis [None]
  - Mitral valve incompetence [None]
  - Aneurysm [None]
  - Abscess [None]
  - Mitral valve thickening [None]
  - Cerebral haemorrhage [None]
  - Brain oedema [None]
  - Haemorrhagic cerebellar infarction [None]
  - Dysarthria [None]
  - Dysmetria [None]
  - Ataxia [None]
  - Endocarditis [None]

NARRATIVE: CASE EVENT DATE: 20211129
